FAERS Safety Report 5730660-4 (Version None)
Quarter: 2008Q2

REPORT INFORMATION
  Report Type: 
  Country: None (occurrence: None)
  Receive Date: 20080507
  Receipt Date: 20080501
  Transmission Date: 20081010
  Serious: Yes (Other)
  Sender: FDA-Public Use
  Company Number: US-ASTRAZENECA-2008UW09019

PATIENT
  Age: 83 Year
  Sex: Female
  Weight: 99.8 kg

DRUGS (1)
  1. CRESTOR [Suspect]
     Indication: BLOOD CHOLESTEROL INCREASED
     Route: 048

REACTIONS (4)
  - ARTHRALGIA [None]
  - HIP FRACTURE [None]
  - IMPAIRED HEALING [None]
  - PAIN [None]
